FAERS Safety Report 7204940-X (Version None)
Quarter: 2010Q4

REPORT INFORMATION
  Report Type: 
  Country: None (occurrence: None)
  Receive Date: 20101230
  Receipt Date: 20101217
  Transmission Date: 20110411
  Serious: Yes (Other)
  Sender: FDA-Public Use
  Company Number: IQ-AMGEN-IRQSP2010011125

PATIENT

DRUGS (2)
  1. NEUPOGEN [Suspect]
     Indication: FEBRILE NEUTROPENIA
  2. ANTIBIOTICS [Concomitant]

REACTIONS (1)
  - NEUTROPHILIA [None]
